FAERS Safety Report 9470910 (Version 2)
Quarter: 2014Q1

REPORT INFORMATION
  Report Type: Report from Study
  Country: CA (occurrence: CA)
  Receive Date: 20130822
  Receipt Date: 20140317
  Transmission Date: 20141002
  Serious: Yes (Hospitalization, Other)
  Sender: FDA-Public Use
  Company Number: CA-UCBSA-095467

PATIENT
  Age: 57 Year
  Sex: Male
  Weight: 95.25 kg

DRUGS (6)
  1. CIMZIA [Suspect]
     Indication: ANKYLOSING SPONDYLITIS
     Route: 058
     Dates: start: 20100526
  2. CIMZIA [Suspect]
     Indication: ANKYLOSING SPONDYLITIS
     Dosage: 0-2-4 WEEKS
     Route: 058
     Dates: start: 20100414, end: 20100512
  3. LYRICA [Concomitant]
     Indication: ANKYLOSING SPONDYLITIS
     Route: 048
  4. BISOPROPOL [Concomitant]
     Indication: HYPERTENSION
     Route: 048
  5. CYMBALTA [Concomitant]
     Indication: ANKYLOSING SPONDYLITIS
     Route: 048
  6. COUMADIN [Concomitant]
     Indication: CARDIOVASCULAR EVENT PROPHYLAXIS
     Route: 048

REACTIONS (2)
  - Blood urine present [Not Recovered/Not Resolved]
  - Lower gastrointestinal haemorrhage [Recovered/Resolved]
